FAERS Safety Report 5202752-X (Version None)
Quarter: 2006Q4

REPORT INFORMATION
  Report Type: 
  Country: None (occurrence: None)
  Receive Date: 20061018
  Receipt Date: 20051019
  Transmission Date: 20070319
  Serious: Yes (Other)
  Sender: FDA-Public Use
  Company Number: PHEH2005US11679

PATIENT
  Age: 59 Year
  Sex: Female

DRUGS (2)
  1. ZOMETA [Suspect]
     Indication: BREAST CANCER METASTATIC
     Dosage: 4 MG, (UNSPECIFIED); 4 MG
     Dates: start: 20050601, end: 20050701
  2. ZOMETA [Suspect]
     Indication: BREAST CANCER METASTATIC
     Dosage: 4 MG, (UNSPECIFIED); 4 MG
     Dates: start: 20051001

REACTIONS (4)
  - BLOOD CALCIUM DECREASED [None]
  - BLOOD THYROID STIMULATING HORMONE DECREASED [None]
  - MUSCLE SPASMS [None]
  - PAIN IN EXTREMITY [None]
